FAERS Safety Report 6842568-1 (Version None)
Quarter: 2010Q3

REPORT INFORMATION
  Report Type: 
  Country: None (occurrence: None)
  Receive Date: 20100714
  Receipt Date: 20070731
  Transmission Date: 20110219
  Serious: No
  Sender: FDA-Public Use
  Company Number: US-PFIZER INC-2007064968

PATIENT
  Sex: Female
  Weight: 55.3 kg

DRUGS (3)
  1. CHANTIX [Suspect]
     Indication: SMOKING CESSATION THERAPY
     Dates: start: 20070706
  2. MULTI-VITAMINS [Concomitant]
  3. CALCIUM [Concomitant]

REACTIONS (1)
  - NAUSEA [None]
